FAERS Safety Report 7476983-2 (Version None)
Quarter: 2011Q2

REPORT INFORMATION
  Report Type: 
  Country: None (occurrence: None)
  Receive Date: 20110512
  Receipt Date: 20110429
  Transmission Date: 20111010
  Serious: Yes (Other)
  Sender: FDA-Public Use
  Company Number: CA-BAYER-2011-024714

PATIENT
  Age: 36 Year
  Sex: Female

DRUGS (5)
  1. CLOTRIMAZOLE [Suspect]
     Indication: FUNGAL INFECTION
     Dosage: UNK
     Route: 061
     Dates: start: 20101007
  2. NPH INSULIN [Concomitant]
  3. INSULIN [Concomitant]
  4. METFORMIN HCL [Concomitant]
  5. FLUCONAZOLE [Suspect]
     Indication: FUNGAL INFECTION
     Dosage: 150 MG, ONCE
     Route: 048
     Dates: start: 20101001

REACTIONS (3)
  - APPLICATION SITE PAIN [None]
  - FUNGAL INFECTION [None]
  - APPLICATION SITE SWELLING [None]
